FAERS Safety Report 21479760 (Version 2)
Quarter: 2022Q4

REPORT INFORMATION
  Report Type: Report from Study
  Country: US (occurrence: None)
  Receive Date: 20221019
  Receipt Date: 20221114
  Transmission Date: 20230113
  Serious: Yes (Death, Hospitalization, Other)
  Sender: FDA-Public Use
  Company Number: 2022A347992

PATIENT
  Age: 910 Month
  Sex: Female
  Weight: 59 kg

DRUGS (2)
  1. LYNPARZA [Suspect]
     Active Substance: OLAPARIB
     Indication: Breast cancer metastatic
     Route: 048
     Dates: start: 202204, end: 20220829
  2. NEXIUM [Suspect]
     Active Substance: ESOMEPRAZOLE MAGNESIUM
     Dosage: 40
     Route: 048

REACTIONS (18)
  - Oxygen saturation decreased [Fatal]
  - Pneumonia [Fatal]
  - Pulmonary oedema [Fatal]
  - Full blood count decreased [Fatal]
  - Haemoglobin decreased [Fatal]
  - Dyspnoea [Fatal]
  - Syncope [Unknown]
  - Neoplasm malignant [Fatal]
  - Wheezing [Fatal]
  - Fatigue [Fatal]
  - Dysphagia [Fatal]
  - Seizure [Fatal]
  - Protein total decreased [Fatal]
  - Cough [Fatal]
  - Oedema [Fatal]
  - Constipation [Fatal]
  - White blood cell count increased [Fatal]
  - Overdose [Unknown]

NARRATIVE: CASE EVENT DATE: 20220801
